FAERS Safety Report 14171697 (Version 1)
Quarter: 2017Q4

REPORT INFORMATION
  Report Type: Spontaneous
  Country: GB (occurrence: GB)
  Receive Date: 20171108
  Receipt Date: 20171108
  Transmission Date: 20180321
  Serious: Yes (Hospitalization, Other)
  Sender: FDA-Public Use
  Company Number: GB-BAUSCH-BL-2017-030985

PATIENT
  Age: 49 Year
  Sex: Female

DRUGS (1)
  1. DEXAMETHASONE. [Suspect]
     Active Substance: DEXAMETHASONE
     Indication: MENINGIOMA MALIGNANT
     Route: 065

REACTIONS (2)
  - Central nervous system infection [Recovering/Resolving]
  - Brain empyema [Recovered/Resolved]
